FAERS Safety Report 17794336 (Version 2)
Quarter: 2020Q3

REPORT INFORMATION
  Report Type: Spontaneous
  Country: FR (occurrence: FR)
  Receive Date: 20200515
  Receipt Date: 20200709
  Transmission Date: 20201102
  Serious: Yes (Other)
  Sender: FDA-Public Use
  Company Number: FR-MYLANLABS-2020M1047850

PATIENT
  Age: 59 Year
  Sex: Female

DRUGS (3)
  1. BOSENTAN. [Suspect]
     Active Substance: BOSENTAN
     Indication: PRODUCT USED FOR UNKNOWN INDICATION
     Dosage: UNK, DOSE REDUCED
  2. THYROZOL [Interacting]
     Active Substance: METHIMAZOLE
     Indication: HYPERTHYROIDISM
     Dosage: 10 MILLIGRAM, RESTARTED WITH AN INCREASED DOSE
  3. THYROZOL [Interacting]
     Active Substance: METHIMAZOLE
     Dosage: 5 MILLIGRAM, STOPPED THYROZOL IN LATE JAN OR EARLY FEB 2020
     Dates: start: 201910

REACTIONS (5)
  - Hypothyroidism [Unknown]
  - Drug interaction [Unknown]
  - Hyperthyroidism [Unknown]
  - Product dose omission issue [Unknown]
  - Product availability issue [Unknown]

NARRATIVE: CASE EVENT DATE: 202004
